FAERS Safety Report 17199178 (Version 3)
Quarter: 2020Q1

REPORT INFORMATION
  Report Type: Spontaneous
  Country: SI (occurrence: SI)
  Receive Date: 20191225
  Receipt Date: 20200121
  Transmission Date: 20200409
  Serious: Yes (Death)
  Sender: FDA-Public Use
  Company Number: SI-009507513-1912SVN008043

PATIENT
  Age: 79 Year
  Sex: Male

DRUGS (20)
  1. GLUCOSALINE [Concomitant]
     Indication: CARDIAC ARREST
     Dosage: UNK
  2. NOREPINEPHRINE. [Concomitant]
     Active Substance: NOREPINEPHRINE
     Indication: CARDIAC ARREST
     Dosage: UNK
  3. NOREPINEPHRINE. [Concomitant]
     Active Substance: NOREPINEPHRINE
     Indication: OBSTRUCTIVE SHOCK
  4. ALTEPLASE. [Concomitant]
     Active Substance: ALTEPLASE
     Indication: PULMONARY EMBOLISM
  5. PHYTONADIONE. [Concomitant]
     Active Substance: PHYTONADIONE
     Indication: COAGULATION TEST ABNORMAL
     Dosage: UNK
  6. IMIPENEM AND CILASTATIN [Suspect]
     Active Substance: CILASTATIN SODIUM\IMIPENEM
     Indication: SEPSIS
  7. GLUCOSALINE [Concomitant]
     Indication: PULMONARY EMBOLISM
  8. HEPARIN [Concomitant]
     Active Substance: HEPARIN SODIUM
     Indication: CARDIAC ARREST
     Dosage: A CONTINUOUS INFUSION
  9. IMIPENEM AND CILASTATIN [Suspect]
     Active Substance: CILASTATIN SODIUM\IMIPENEM
     Indication: PNEUMONIA ASPIRATION
     Dosage: UNK
  10. VANCOMYCIN [Suspect]
     Active Substance: VANCOMYCIN
     Indication: PNEUMONIA ASPIRATION
     Dosage: UNK
  11. GLUCOSALINE [Concomitant]
     Indication: OBSTRUCTIVE SHOCK
  12. ALTEPLASE. [Concomitant]
     Active Substance: ALTEPLASE
     Indication: CARDIAC ARREST
     Dosage: 100 MG/2 HOURS
  13. HEPARIN [Concomitant]
     Active Substance: HEPARIN SODIUM
     Indication: OBSTRUCTIVE SHOCK
  14. BLOOD, PLASMA [Concomitant]
     Active Substance: HUMAN PLASMA
     Indication: COAGULATION TEST ABNORMAL
     Dosage: UNK
  15. FIBRINOGEN, HUMAN [Concomitant]
     Indication: COAGULATION TEST ABNORMAL
     Dosage: UNK
  16. HEPARIN [Concomitant]
     Active Substance: HEPARIN SODIUM
     Indication: PULMONARY EMBOLISM
  17. VANCOMYCIN [Suspect]
     Active Substance: VANCOMYCIN
     Indication: SEPSIS
  18. AMOXICLAV [Suspect]
     Active Substance: AMOXICILLIN\CLAVULANATE POTASSIUM
     Indication: EVIDENCE BASED TREATMENT
     Dosage: UNK
  19. NOREPINEPHRINE. [Concomitant]
     Active Substance: NOREPINEPHRINE
     Indication: PULMONARY EMBOLISM
  20. ALTEPLASE. [Concomitant]
     Active Substance: ALTEPLASE
     Indication: OBSTRUCTIVE SHOCK

REACTIONS (1)
  - Drug ineffective [Fatal]
